FAERS Safety Report 9502409 (Version 2)
Quarter: 2013Q4

REPORT INFORMATION
  Report Type: Report from Study
  Country: GB (occurrence: GB)
  Receive Date: 20130906
  Receipt Date: 20131008
  Transmission Date: 20140711
  Serious: Yes (Death, Hospitalization, Other)
  Sender: FDA-Public Use
  Company Number: GB-ROCHE-1269739

PATIENT
  Age: 91 Year
  Sex: Male

DRUGS (7)
  1. RANIBIZUMAB [Suspect]
     Indication: PRODUCT USED FOR UNKNOWN INDICATION
     Dosage: LEFT EYE
     Route: 050
     Dates: start: 20090124
  2. RANIBIZUMAB [Suspect]
     Route: 050
     Dates: start: 20100608
  3. RANIBIZUMAB [Suspect]
     Route: 050
     Dates: start: 20110815
  4. RANIBIZUMAB [Suspect]
     Route: 050
     Dates: start: 20120625
  5. METFORMIN [Concomitant]
     Indication: DIABETES MELLITUS
     Route: 065
     Dates: start: 20130515
  6. WARFARIN [Concomitant]
     Indication: AORTIC VALVE DISEASE
     Route: 065
     Dates: start: 1994
  7. WARFARIN [Concomitant]
     Route: 065
     Dates: start: 20130515

REACTIONS (6)
  - Fall [Fatal]
  - Blood pressure decreased [Fatal]
  - Cervical vertebral fracture [Not Recovered/Not Resolved]
  - Laceration [Not Recovered/Not Resolved]
  - Coma scale abnormal [Not Recovered/Not Resolved]
  - Dementia [Not Recovered/Not Resolved]
